FAERS Safety Report 24233223 (Version 1)
Quarter: 2024Q3

REPORT INFORMATION
  Report Type: Spontaneous
  Country: CN (occurrence: CN)
  Receive Date: 20240821
  Receipt Date: 20240821
  Transmission Date: 20241016
  Serious: Yes (Other)
  Sender: BAYER
  Company Number: CN-BAYER-2024A120169

PATIENT
  Age: 68 Year
  Sex: Female
  Weight: 58 kg

DRUGS (1)
  1. ULTRAVIST [Suspect]
     Active Substance: IOPROMIDE
     Indication: Angiogram
     Dosage: 100 ML, ONCE
     Route: 042
     Dates: start: 20240811, end: 20240811

REACTIONS (4)
  - Wheezing [Unknown]
  - Dyspnoea [Unknown]
  - Dysphoria [None]
  - Heart rate increased [None]

NARRATIVE: CASE EVENT DATE: 20240811
